FAERS Safety Report 5002121-1 (Version None)
Quarter: 2006Q2

REPORT INFORMATION
  Report Type: 
  Country: None (occurrence: None)
  Receive Date: 20060510
  Receipt Date: 20060501
  Transmission Date: 20061013
  Serious: Yes (Death, Congenital Anomaly)
  Sender: FDA-Public Use
  Company Number: 2006059679

PATIENT
  Sex: Female

DRUGS (4)
  1. VIRACEPT [Suspect]
     Indication: HIV TEST POSITIVE
     Dosage: 2500 MG, ORAL
     Route: 048
     Dates: start: 20051114
  2. COMBIVIR [Suspect]
     Indication: HIV TEST POSITIVE
     Dosage: 600/300 MG, ORAL
     Route: 048
     Dates: start: 20051114, end: 20060106
  3. ZERIT [Suspect]
     Indication: HIV TEST POSITIVE
     Dosage: 80 MG, ORAL
     Route: 048
     Dates: start: 20060106
  4. EPIVIR [Suspect]
     Indication: HIV TEST POSITIVE
     Dosage: 300 MG, ORAL
     Route: 048
     Dates: start: 20060106

REACTIONS (8)
  - CHORIOAMNIONITIS [None]
  - DRUG EXPOSURE DURING PREGNANCY [None]
  - FUNISITIS [None]
  - MECONIUM IN AMNIOTIC FLUID [None]
  - PHLEBITIS [None]
  - PLACENTAL DISORDER [None]
  - SKULL MALFORMATION [None]
  - STILLBIRTH [None]
